FAERS Safety Report 10067579 (Version 3)
Quarter: 2014Q2

REPORT INFORMATION
  Report Type: Report from Study
  Country: US (occurrence: US)
  Receive Date: 20140409
  Receipt Date: 20140416
  Transmission Date: 20141212
  Serious: Yes (Hospitalization, Disabling)
  Sender: FDA-Public Use
  Company Number: US-JNJFOC-20140404344

PATIENT
  Age: 7 Year
  Sex: Female
  Weight: 19.6 kg

DRUGS (20)
  1. REMICADE [Suspect]
     Indication: CROHN^S DISEASE
     Route: 042
     Dates: start: 20110908
  2. PEDIASURE [Concomitant]
     Route: 065
  3. METHOTREXATE [Concomitant]
     Route: 065
  4. AZULFIDINE [Concomitant]
     Route: 065
  5. FOLIC ACID [Concomitant]
     Route: 065
  6. PREDNISONE [Concomitant]
     Route: 065
  7. CIMZIA [Concomitant]
     Route: 065
     Dates: start: 20130531, end: 20130808
  8. CHOLECALCIFEROL [Concomitant]
     Route: 065
  9. HUMIRA [Concomitant]
     Route: 065
     Dates: start: 20130829
  10. PREDNISOLONE SODIUM PHOSPHATE [Concomitant]
     Route: 065
  11. VITAMIN B COMPLEX [Concomitant]
     Route: 065
  12. ZOFRAN [Concomitant]
     Route: 065
  13. EMLA (LIDOCAINE/PRILOCAINE) [Concomitant]
     Route: 065
  14. ZITHROMAX [Concomitant]
     Route: 065
  15. ALBUTEROL [Concomitant]
     Route: 065
  16. PREDNISOLONE [Concomitant]
     Route: 065
  17. CEFDINIR [Concomitant]
     Route: 065
  18. BECLOMETHASONE [Concomitant]
     Route: 065
  19. AMMONIUM LACTATE [Concomitant]
     Route: 065
  20. LACTOBAC [Concomitant]
     Route: 065

REACTIONS (1)
  - Crohn^s disease [Recovered/Resolved]
